FAERS Safety Report 22137341 (Version 2)
Quarter: 2023Q1

REPORT INFORMATION
  Report Type: Spontaneous
  Country: US (occurrence: US)
  Receive Date: 20230325
  Receipt Date: 20230330
  Transmission Date: 20230417
  Serious: Yes (Life-Threatening, Other)
  Sender: FDA-Public Use
  Company Number: US-MLMSERVICE-20230309-4156790-1

PATIENT
  Age: 70 Year
  Sex: Female

DRUGS (1)
  1. SOTALOL HYDROCHLORIDE [Suspect]
     Active Substance: SOTALOL HYDROCHLORIDE
     Indication: Atrial fibrillation
     Dosage: UNK
     Route: 065

REACTIONS (2)
  - Sinus bradycardia [Recovered/Resolved]
  - Torsade de pointes [Recovered/Resolved]
